FAERS Safety Report 7362729-5 (Version None)
Quarter: 2011Q1

REPORT INFORMATION
  Report Type: 
  Country: None (occurrence: None)
  Receive Date: 20110321
  Receipt Date: 20110311
  Transmission Date: 20110831
  Serious: Yes (Hospitalization)
  Sender: FDA-Public Use
  Company Number: US-BIOGENIDEC-2011BI009405

PATIENT
  Age: 49 Year
  Sex: Female

DRUGS (2)
  1. AVONEX [Suspect]
     Indication: MULTIPLE SCLEROSIS
     Route: 030
     Dates: start: 20110225
  2. AVONEX [Suspect]
     Route: 030
     Dates: start: 20070708

REACTIONS (5)
  - INTESTINAL OBSTRUCTION [None]
  - MENORRHAGIA [None]
  - VIRAL INFECTION [None]
  - ABSCESS [None]
  - URINARY TRACT INFECTION [None]
